FAERS Safety Report 9498204 (Version 2)
Quarter: 2013Q4

REPORT INFORMATION
  Report Type: Spontaneous
  Country: US (occurrence: US)
  Receive Date: 20130904
  Receipt Date: 20131106
  Transmission Date: 20140711
  Serious: Yes (Hospitalization)
  Sender: FDA-Public Use
  Company Number: US-ELI_LILLY_AND_COMPANY-US201308008648

PATIENT
  Sex: Male

DRUGS (2)
  1. HUMALOG LISPRO [Suspect]
     Indication: DIABETES MELLITUS
     Dosage: UNK UNK, UNKNOWN
  2. LANTUS [Concomitant]
     Dosage: UNK, UNKNOWN

REACTIONS (7)
  - Infection [Unknown]
  - Foreign body [Unknown]
  - Blood glucose increased [Unknown]
  - Arthropathy [Unknown]
  - Gait disturbance [Unknown]
  - Visual acuity reduced [Unknown]
  - Drug dose omission [Unknown]
